FAERS Safety Report 9976964 (Version 1)
Quarter: 2014Q1

REPORT INFORMATION
  Report Type: Report from Study
  Country: US (occurrence: US)
  Receive Date: 20140306
  Receipt Date: 20140306
  Transmission Date: 20141002
  Serious: No
  Sender: FDA-Public Use
  Company Number: US-ABBVIE-13P-163-1167981-00

PATIENT
  Sex: Female

DRUGS (9)
  1. HUMIRA [Suspect]
     Indication: RHEUMATOID ARTHRITIS
     Dosage: 40MG WEEKLY
  2. NEXIUM [Concomitant]
     Indication: GASTROOESOPHAGEAL REFLUX DISEASE
  3. PRISTIQ [Concomitant]
     Indication: ANXIETY
  4. TRAMADOL [Concomitant]
     Indication: ARTHRALGIA
  5. TREZIX [Concomitant]
     Indication: PAIN
  6. SINGULAIR [Concomitant]
     Indication: ASTHMA
  7. XYZAL [Concomitant]
     Indication: HYPERSENSITIVITY
  8. ADVIL [Concomitant]
     Indication: PAIN
  9. SKELAXIN [Concomitant]
     Indication: TRISMUS

REACTIONS (2)
  - Injection site bruising [Not Recovered/Not Resolved]
  - Injection site pain [Not Recovered/Not Resolved]
